FAERS Safety Report 8261957-4 (Version None)
Quarter: 2012Q2

REPORT INFORMATION
  Report Type: 
  Country: None (occurrence: None)
  Receive Date: 20120405
  Receipt Date: 20120327
  Transmission Date: 20120825
  Serious: Yes (Death, Hospitalization)
  Sender: FDA-Public Use
  Company Number: DE-PFIZER INC-2011222181

PATIENT
  Age: 47 Year
  Sex: Male
  Weight: 68 kg

DRUGS (4)
  1. TEMSIROLIMUS [Suspect]
     Indication: GLIOBLASTOMA
     Dosage: 30 MG, UNK
     Dates: start: 20110719, end: 20110906
  2. IRINOTECAN HCL [Suspect]
     Indication: METASTASES TO CENTRAL NERVOUS SYSTEM
  3. TEMSIROLIMUS [Suspect]
     Indication: METASTASES TO CENTRAL NERVOUS SYSTEM
  4. IRINOTECAN HCL [Suspect]
     Indication: GLIOBLASTOMA
     Dosage: 300 MG, UNK
     Dates: start: 20110719, end: 20110906

REACTIONS (1)
  - GENERAL PHYSICAL HEALTH DETERIORATION [None]
